FAERS Safety Report 7462763-0 (Version None)
Quarter: 2011Q2

REPORT INFORMATION
  Report Type: 
  Country: None (occurrence: None)
  Receive Date: 20110506
  Receipt Date: 20110414
  Transmission Date: 20111010
  Serious: Yes (Life-Threatening, Hospitalization)
  Sender: FDA-Public Use
  Company Number: US-BAYER-201040903NA

PATIENT
  Age: 25 Year
  Sex: Female
  Weight: 73 kg

DRUGS (9)
  1. YAZ [Suspect]
     Indication: MENORRHAGIA
  2. DROSPIRENONE AND ETHINYL ESTRADIOL [Suspect]
     Indication: MENORRHAGIA
  3. EFFEXOR [Concomitant]
     Dosage: 300 MG, QD
  4. ALBUTEROL INHALER [Concomitant]
     Dosage: 2 PUFF(S), PRN
  5. TRAZODONE [Concomitant]
     Dosage: 200 MG, QD
  6. DROSPIRENONE AND ETHINYL ESTRADIOL [Suspect]
     Indication: CONTRACEPTION
     Dosage: UNK
     Dates: start: 20060501, end: 20061130
  7. YASMIN [Suspect]
     Indication: MENORRHAGIA
  8. YASMIN [Suspect]
     Indication: CONTRACEPTION
     Dosage: UNK
     Dates: start: 20060501, end: 20061130
  9. YAZ [Suspect]
     Indication: CONTRACEPTION
     Dosage: UNK
     Dates: start: 20060501, end: 20061130

REACTIONS (3)
  - PULMONARY EMBOLISM [None]
  - PULMONARY INFARCTION [None]
  - THROMBOSIS [None]
